FAERS Safety Report 5452108-X (Version None)
Quarter: 2007Q3

REPORT INFORMATION
  Report Type: 
  Country: None (occurrence: None)
  Receive Date: 20070912
  Receipt Date: 20070830
  Transmission Date: 20080115
  Serious: Yes (Hospitalization)
  Sender: FDA-Public Use
  Company Number: CERZ-11803

PATIENT
  Age: 75 Year
  Sex: Female
  Weight: 56.6 kg

DRUGS (1)
  1. CEREZYME [Suspect]
     Indication: GAUCHER'S DISEASE
     Dosage: 60 U/KG Q2W3KS IV
     Route: 042
     Dates: start: 20070613

REACTIONS (2)
  - FALL [None]
  - FEMUR FRACTURE [None]
